FAERS Safety Report 8910689 (Version 1)
Quarter: 2012Q4

REPORT INFORMATION
  Report Type: Spontaneous
  Country: RS (occurrence: None)
  Receive Date: 20121107
  Receipt Date: 20121107
  Transmission Date: 20130627
  Serious: Yes (Other)
  Sender: FDA-Public Use
  Company Number: FK201203283

PATIENT
  Age: 13 Year
  Sex: Female

DRUGS (7)
  1. FLUOROURACIL [Suspect]
     Indication: COLON CANCER
  2. OXALIPLATIN [Suspect]
     Indication: COLON CANCER
  3. LEUCOVORIN CALCIUM [Suspect]
     Indication: COLON CANCER
  4. CAPECITABINE (CAPECITABINE) [Concomitant]
  5. IRINOTECAN (IRINOTECAN) [Concomitant]
  6. BEVACIZUMAB (BEVACIZUMAB) [Concomitant]
  7. CETUXIMAB (CETUXIMAB) [Concomitant]

REACTIONS (4)
  - Anaemia [None]
  - Neutropenia [None]
  - Nausea [None]
  - Paraesthesia [None]
